FAERS Safety Report 5107362-0 (Version None)
Quarter: 2006Q3

REPORT INFORMATION
  Report Type: 
  Country: None (occurrence: None)
  Receive Date: 20060914
  Receipt Date: 20060905
  Transmission Date: 20061208
  Serious: Yes (Other)
  Sender: FDA-Public Use
  Company Number: 2006108279

PATIENT
  Age: 68 Year
  Sex: Male
  Weight: 68.0396 kg

DRUGS (4)
  1. LIPITOR [Suspect]
     Indication: BLOOD CHOLESTEROL INCREASED
     Dosage: 10 MG (10 MG, 1 IN 1 D), ORAL/8 TO 10 YRS
     Route: 048
  2. ALTACE [Concomitant]
  3. METOPROLOL (METOPROLOL) [Concomitant]
  4. ASPIRIN [Concomitant]

REACTIONS (2)
  - MUSCLE ATROPHY [None]
  - WEIGHT DECREASED [None]
